FAERS Safety Report 5190351-8 (Version None)
Quarter: 2006Q4

REPORT INFORMATION
  Report Type: 
  Country: None (occurrence: None)
  Receive Date: 20061222
  Receipt Date: 20060619
  Transmission Date: 20070319
  Serious: No
  Sender: FDA-Public Use
  Company Number: US-AMGEN-US183358

PATIENT
  Sex: Female

DRUGS (14)
  1. ARANESP [Suspect]
     Indication: ANAEMIA OF MALIGNANT DISEASE
     Route: 065
     Dates: start: 20060101
  2. VITAMIN B-12 [Concomitant]
     Route: 065
  3. BISOPROLOL FUMARATE [Concomitant]
     Route: 065
  4. POTASSIUM CHLORIDE [Concomitant]
     Route: 065
  5. GLIPIZIDE [Concomitant]
     Route: 065
  6. LASIX [Concomitant]
     Route: 065
  7. DIGITEK [Concomitant]
     Route: 065
  8. ACTOS [Concomitant]
     Route: 065
  9. DIOVAN [Concomitant]
     Route: 065
  10. LANTUS [Concomitant]
     Route: 065
  11. UNKNOWN [Concomitant]
     Route: 065
  12. CORTICOSTEROID NOS [Concomitant]
     Route: 065
  13. CARBOPLATIN [Concomitant]
     Route: 065
  14. TAXOTERE [Concomitant]
     Route: 065

REACTIONS (4)
  - BLOOD GLUCOSE INCREASED [None]
  - HAEMOGLOBIN DECREASED [None]
  - HYPERSENSITIVITY [None]
  - NAUSEA [None]
